FAERS Safety Report 7634992-4 (Version None)
Quarter: 2011Q3

REPORT INFORMATION
  Report Type: 
  Country: None (occurrence: None)
  Receive Date: 20110726
  Receipt Date: 20110721
  Transmission Date: 20111222
  Serious: Yes (Other)
  Sender: FDA-Public Use
  Company Number: US-BAYER-2011-063953

PATIENT
  Age: 21 Year
  Sex: Female

DRUGS (2)
  1. DROSPIRENONE AND ETHINYL ESTRADIOL [Suspect]
     Dosage: UNK
     Dates: start: 20050501, end: 20100101
  2. YASMIN [Suspect]
     Dosage: UNK
     Dates: start: 20050501, end: 20100101

REACTIONS (3)
  - CHOLECYSTECTOMY [None]
  - INJURY [None]
  - PAIN [None]
